FAERS Safety Report 8962974 (Version 1)
Quarter: 2012Q4

REPORT INFORMATION
  Report Type: 
  Country: US (occurrence: US)
  Receive Date: 20121214
  Receipt Date: 20121214
  Transmission Date: 20130627
  Serious: Yes (Death)
  Sender: FDA-Public Use
  Company Number: US-JNJFOC-20121204910

PATIENT
  Sex: Female

DRUGS (4)
  1. CYCLOPHOSPHAMIDE [Suspect]
     Indication: BREAST CANCER
     Dosage: 4 cycles
     Route: 065
  2. PACLITAXEL [Suspect]
     Indication: BREAST CANCER
     Dosage: 175 mg/m2 every 3 weeks or 12 weekly dose of 80 mg/m2
     Route: 065
  3. TRASTUZUMAB [Suspect]
     Indication: BREAST CANCER
     Dosage: 4 mg/kg loading dose, then 2 mg/kg for 52 weeks starting with the first paclitaxel dose
     Route: 065
  4. DOXORUBICIN [Suspect]
     Indication: BREAST CANCER
     Dosage: 4 cycles
     Route: 042

REACTIONS (1)
  - Cardiac failure congestive [Fatal]
